FAERS Safety Report 4858736-4 (Version None)
Quarter: 2005Q4

REPORT INFORMATION
  Report Type: 
  Country: None (occurrence: None)
  Receive Date: 20051219
  Receipt Date: 20051024
  Transmission Date: 20060501
  Serious: No
  Sender: FDA-Public Use
  Company Number: US-GLAXOSMITHKLINE-A0579321A

PATIENT
  Age: 53 Year
  Sex: Female

DRUGS (3)
  1. NICODERM CQ [Suspect]
     Dates: start: 20050929
  2. NICODERM CQ [Suspect]
     Dates: start: 20051005
  3. NICODERM CQ [Suspect]
     Dates: start: 20051019

REACTIONS (2)
  - CONFUSIONAL STATE [None]
  - DIZZINESS [None]
